FAERS Safety Report 10034734 (Version 2)
Quarter: 2014Q1

REPORT INFORMATION
  Report Type: Report from Study
  Country: NO (occurrence: NO)
  Receive Date: 20140325
  Receipt Date: 20140325
  Transmission Date: 20141002
  Serious: Yes (Hospitalization)
  Sender: FDA-Public Use
  Company Number: NO-MERCK-0809USA01642

PATIENT
  Age: 60 Year
  Sex: Male
  Weight: 101 kg

DRUGS (14)
  1. BLINDED EZETIMIBE (+) SIMVASTATIN [Suspect]
     Indication: ACUTE CORONARY SYNDROME
     Dosage: UNK
     Route: 048
     Dates: start: 20070321
  2. BLINDED THERAPY [Suspect]
     Indication: ACUTE CORONARY SYNDROME
     Dosage: UNK
     Route: 048
     Dates: start: 20070321
  3. LOSARTAN POTASSIUM (+) HYDROCHLOROTHIAZIDE [Suspect]
     Dosage: TOTAL DAILY DOSE: 12.5 /12.5 MG
     Route: 048
     Dates: start: 20041013
  4. LOSARTAN POTASSIUM (+) HYDROCHLOROTHIAZIDE [Suspect]
     Dosage: TOTAL DAILY DOSE: 50 /12.5 MG
     Route: 048
  5. EFFEXOR [Suspect]
     Dosage: UNK
     Route: 048
     Dates: start: 20080415
  6. EFFEXOR [Suspect]
     Dosage: UNK
     Route: 048
  7. PREDNISOLONE [Concomitant]
     Dosage: 5-7 MG
     Route: 048
     Dates: start: 19950101
  8. ALBYL-E [Concomitant]
     Dosage: UNK UNK, QD
     Route: 048
     Dates: start: 20041013
  9. ALBYL-E [Concomitant]
     Dosage: UNK
     Route: 048
     Dates: start: 20071013, end: 20120825
  10. SELO-ZOK [Concomitant]
     Dosage: UNK
     Route: 048
     Dates: start: 20041013
  11. IMDUR [Concomitant]
     Dosage: (ALSO  REPORTED AS 15 MG)
     Route: 048
     Dates: start: 20070615
  12. VOLTAREN [Concomitant]
     Dosage: UNK
     Route: 048
     Dates: start: 20020401, end: 20080805
  13. VOLTAREN [Concomitant]
     Dosage: UNK
     Route: 048
     Dates: start: 20020401
  14. NORVASC [Concomitant]
     Dosage: UNK
     Route: 048
     Dates: start: 20041013

REACTIONS (5)
  - Orthostatic hypotension [Recovered/Resolved]
  - Orthostatic hypotension [Recovered/Resolved]
  - Pulmonary embolism [Recovered/Resolved]
  - Depression [Recovered/Resolved]
  - Depression [Recovered/Resolved]
